FAERS Safety Report 20751500 (Version 1)
Quarter: 2022Q2

REPORT INFORMATION
  Report Type: Spontaneous
  Country: US (occurrence: None)
  Receive Date: 20220426
  Receipt Date: 20220426
  Transmission Date: 20220721
  Serious: Yes (Other)
  Sender: FDA-Public Use
  Company Number: None

PATIENT
  Sex: Female
  Weight: 72.57 kg

DRUGS (1)
  1. WELLBUTRIN XL [Suspect]
     Active Substance: BUPROPION HYDROCHLORIDE
     Indication: Major depression
     Dosage: FREQUENCY : TWICE A DAY;?
     Route: 048
     Dates: start: 20071117, end: 20071129

REACTIONS (3)
  - Dysphagia [None]
  - Feeling jittery [None]
  - Palpitations [None]
